FAERS Safety Report 15860668 (Version 1)
Quarter: 2019Q1

REPORT INFORMATION
  Report Type: Spontaneous
  Country: DK (occurrence: DK)
  Receive Date: 20190124
  Receipt Date: 20190124
  Transmission Date: 20190417
  Serious: Yes (Other)
  Sender: FDA-Public Use
  Company Number: DK-TEVA-2018-DK-887182

PATIENT
  Age: 53 Year
  Sex: Male
  Weight: 91 kg

DRUGS (3)
  1. HJERTEMAGNYL [Concomitant]
     Active Substance: ASPIRIN\MAGNESIUM OXIDE
     Indication: THROMBOSIS PROPHYLAXIS
     Dosage: 75 MILLIGRAM DAILY; STRENGTH: 75 MG.
     Route: 048
     Dates: start: 20070101, end: 20171110
  2. ATORVASTATIN  ^TEVA^ [Suspect]
     Active Substance: ATORVASTATIN
     Indication: HYPERCHOLESTEROLAEMIA
     Dosage: 40 MILLIGRAM DAILY; STRENGTH: 40 MG.
     Route: 048
     Dates: start: 200701, end: 20171103
  3. ENALAPRIL HYDROCHLORTHIAZID ^TEVA^ [Concomitant]
     Active Substance: ENALAPRIL\HYDROCHLOROTHIAZIDE
     Indication: HYPERTENSION
     Dosage: 20 MILLIGRAM DAILY; STRENGTH: 20  + 12,5 MG.
     Route: 048
     Dates: start: 2007

REACTIONS (25)
  - Peripheral swelling [Unknown]
  - Constipation [Unknown]
  - Headache [Recovered/Resolved]
  - Parkinson^s disease [Unknown]
  - Skin discolouration [Not Recovered/Not Resolved]
  - Diplopia [Recovered/Resolved]
  - Back pain [Recovered/Resolved]
  - Muscular weakness [Not Recovered/Not Resolved]
  - Asthenia [Not Recovered/Not Resolved]
  - Pain [Recovering/Resolving]
  - Amnesia [Recovering/Resolving]
  - Flatulence [Recovering/Resolving]
  - Sensory disturbance [Not Recovered/Not Resolved]
  - Vision blurred [Recovered/Resolved]
  - Libido decreased [Recovered/Resolved]
  - Exercise tolerance decreased [Not Recovered/Not Resolved]
  - Gastrooesophageal reflux disease [Unknown]
  - Paraesthesia [Unknown]
  - Dizziness [Unknown]
  - Myalgia [Not Recovered/Not Resolved]
  - Abdominal pain upper [Recovering/Resolving]
  - Rash [Recovered/Resolved]
  - Tinnitus [Not Recovered/Not Resolved]
  - Arthralgia [Not Recovered/Not Resolved]
  - Skin wound [Unknown]

NARRATIVE: CASE EVENT DATE: 2013
